FAERS Safety Report 15644154 (Version 2)
Quarter: 2018Q4

REPORT INFORMATION
  Report Type: Spontaneous
  Country: US (occurrence: US)
  Receive Date: 20181121
  Receipt Date: 20181126
  Transmission Date: 20190205
  Serious: Yes (Other)
  Sender: FDA-Public Use
  Company Number: US-PFIZER INC-2018472221

PATIENT
  Sex: Male
  Weight: 54 kg

DRUGS (4)
  1. SUCCINYLCHOLINE BROMIDE [Suspect]
     Active Substance: SUXAMETHONIUM BROMIDE
     Dosage: UNK
  2. ROCURONIUM BROMIDE. [Suspect]
     Active Substance: ROCURONIUM BROMIDE
     Dosage: 1%, 10 MG IN 1 ML
  3. FENTANYL CITRATE. [Suspect]
     Active Substance: FENTANYL CITRATE
     Dosage: 50 MG, UNK
     Route: 017
  4. PROPOFOL. [Suspect]
     Active Substance: PROPOFOL
     Dosage: UNK

REACTIONS (2)
  - Oxygen saturation decreased [Unknown]
  - Paralysis [Unknown]
